FAERS Safety Report 16180791 (Version 4)
Quarter: 2019Q3

REPORT INFORMATION
  Report Type: Spontaneous
  Country: US (occurrence: US)
  Receive Date: 20190410
  Receipt Date: 20190816
  Transmission Date: 20191004
  Serious: No
  Sender: FDA-Public Use
  Company Number: US-PFIZER INC-2018032527

PATIENT
  Age: 43 Year
  Sex: Female
  Weight: 68 kg

DRUGS (26)
  1. DOCETAXEL SANOFI-AVENTIS [Suspect]
     Active Substance: DOCETAXEL
     Indication: BREAST CANCER FEMALE
     Dosage: 75 MG/M2, CYCLIC (6 CYCLES, EVERY THREE WEEKS)
     Dates: start: 20120606, end: 20120919
  2. DOCETAXEL TEVA [Suspect]
     Active Substance: DOCETAXEL
     Dosage: 126 MG, UNK
  3. DOCEFREZ [Suspect]
     Active Substance: DOCETAXEL ANHYDROUS
     Dosage: 126 MG, UNK
  4. DOCETAXEL ACCORD [Suspect]
     Active Substance: DOCETAXEL
     Dosage: 126 MG, UNK
  5. DOCETAXEL TEVA [Suspect]
     Active Substance: DOCETAXEL
     Indication: BREAST CANCER FEMALE
     Dosage: 75 MG/M2, CYCLIC (6 CYCLES, EVERY THREE WEEKS)
     Dates: start: 20120606, end: 20120919
  6. DOCETAXEL EAGLE [Suspect]
     Active Substance: DOCETAXEL
     Dosage: 126 MG, UNK
  7. DOCETAXEL NORTHSTAR [Suspect]
     Active Substance: DOCETAXEL
     Indication: BREAST CANCER FEMALE
     Dosage: 75 MG/M2, CYCLIC (6 CYCLES, EVERY THREE WEEKS)
     Dates: start: 20120606, end: 20120919
  8. DOCETAXEL SAGENT [Suspect]
     Active Substance: DOCETAXEL
     Dosage: 126 MG, UNK
  9. DOCETAXEL. [Suspect]
     Active Substance: DOCETAXEL
     Indication: BREAST CANCER FEMALE
     Dosage: 75 MG/M2, CYCLIC (6 CYCLES, EVERY THREE WEEKS)
     Dates: start: 20120606, end: 20120919
  10. DOCETAXEL ACCORD [Suspect]
     Active Substance: DOCETAXEL
     Indication: BREAST CANCER FEMALE
     Dosage: 75 MG/M2, CYCLIC (6 CYCLES, EVERY THREE WEEKS)
     Dates: start: 20120606, end: 20120919
  11. ADRIAMYCIN [Concomitant]
     Active Substance: DOXORUBICIN HYDROCHLORIDE
     Indication: CHEMOTHERAPY
     Dosage: UNK
  12. DOXIL [Concomitant]
     Active Substance: DOXORUBICIN HYDROCHLORIDE
     Indication: CHEMOTHERAPY
     Dosage: UNK
  13. PEGFILGRASTIM [Concomitant]
     Active Substance: PEGFILGRASTIM
     Dosage: UNK
  14. NEOSAR [Concomitant]
     Active Substance: CYCLOPHOSPHAMIDE
     Indication: CHEMOTHERAPY
     Dosage: UNK
  15. DOCETAXEL SANOFI-AVENTIS [Suspect]
     Active Substance: DOCETAXEL
     Dosage: 126 MG, UNK
  16. DOCEFREZ [Suspect]
     Active Substance: DOCETAXEL ANHYDROUS
     Indication: BREAST CANCER FEMALE
     Dosage: 75 MG/M2, CYCLIC (6 CYCLES, EVERY THREE WEEKS)
     Dates: start: 20120606, end: 20120919
  17. DOCETAXEL. [Suspect]
     Active Substance: DOCETAXEL
     Dosage: 126 MG, UNK
  18. DOCETAXEL SANDOZ [Suspect]
     Active Substance: DOCETAXEL
     Dosage: 126 MG, UNK
  19. DOCETAXEL DR. REDDY^S [Suspect]
     Active Substance: DOCETAXEL
     Dosage: 126 MG, UNK
  20. DOCETAXEL EAGLE [Suspect]
     Active Substance: DOCETAXEL
     Indication: BREAST CANCER FEMALE
     Dosage: 75 MG/M2, CYCLIC (6 CYCLES, EVERY THREE WEEKS)
     Dates: start: 20120606, end: 20120919
  21. PALONOSETRON HCL [Concomitant]
     Active Substance: PALONOSETRON HYDROCHLORIDE
     Dosage: UNK
  22. DOCETAXEL. [Suspect]
     Active Substance: DOCETAXEL
     Dosage: UNK
     Dates: start: 20120606, end: 20120919
  23. DOCETAXEL SANDOZ [Suspect]
     Active Substance: DOCETAXEL
     Indication: BREAST CANCER FEMALE
     Dosage: 75 MG/M2, CYCLIC (6 CYCLES, EVERY THREE WEEKS)
     Dates: start: 20120606, end: 20120919
  24. DOCETAXEL DR. REDDY^S [Suspect]
     Active Substance: DOCETAXEL
     Indication: BREAST CANCER FEMALE
     Dosage: 75 MG/M2, CYCLIC (6 CYCLES, EVERY THREE WEEKS)
     Dates: start: 20120606, end: 20120919
  25. DOCETAXEL NORTHSTAR [Suspect]
     Active Substance: DOCETAXEL
     Dosage: 126 MG, UNK
  26. DOCETAXEL SAGENT [Suspect]
     Active Substance: DOCETAXEL
     Indication: BREAST CANCER FEMALE
     Dosage: 75 MG/M2, CYCLIC (6 CYCLES, EVERY THREE WEEKS)
     Dates: start: 20120606, end: 20120919

REACTIONS (5)
  - Alopecia [Not Recovered/Not Resolved]
  - Madarosis [Not Recovered/Not Resolved]
  - Hair colour changes [Not Recovered/Not Resolved]
  - Hair texture abnormal [Not Recovered/Not Resolved]
  - Hair disorder [Not Recovered/Not Resolved]

NARRATIVE: CASE EVENT DATE: 20130319
